FAERS Safety Report 13253750 (Version 2)
Quarter: 2017Q1

REPORT INFORMATION
  Report Type: Report from Study
  Country: CA (occurrence: CA)
  Receive Date: 20170220
  Receipt Date: 20170306
  Transmission Date: 20170428
  Serious: Yes (Disabling, Other)
  Sender: FDA-Public Use
  Company Number: CA-BEH-2017078261

PATIENT
  Sex: Female

DRUGS (2)
  1. HIZENTRA [Suspect]
     Active Substance: HUMAN IMMUNOGLOBULIN G
     Dosage: 40 ML, QW
     Route: 058
  2. HIZENTRA [Suspect]
     Active Substance: HUMAN IMMUNOGLOBULIN G
     Indication: PRIMARY IMMUNODEFICIENCY SYNDROME
     Dosage: 25 ML, QW
     Route: 058
     Dates: start: 201204

REACTIONS (6)
  - Renal failure [Unknown]
  - Muscular weakness [Unknown]
  - Asthenia [Unknown]
  - Post procedural pneumonia [Unknown]
  - Ill-defined disorder [Unknown]
  - Mastectomy [Unknown]
